FAERS Safety Report 5867769-0 (Version None)
Quarter: 2008Q3

REPORT INFORMATION
  Report Type: 
  Country: None (occurrence: None)
  Receive Date: 20080902
  Receipt Date: 20080822
  Transmission Date: 20090109
  Serious: Yes (Hospitalization)
  Sender: FDA-Public Use
  Company Number: NL-AVENTIS-200811598GDDC

PATIENT
  Age: 69 Year
  Sex: Male

DRUGS (8)
  1. DOCETAXEL [Suspect]
     Indication: PROSTATE CANCER
     Route: 042
     Dates: start: 20080124, end: 20080124
  2. PREDNISONE [Suspect]
     Indication: PROSTATE CANCER
     Route: 048
     Dates: start: 20080124
  3. RISEDRONATE SODIUM [Suspect]
     Indication: PROSTATE CANCER
     Route: 048
     Dates: start: 20080124
  4. ZOLADEX [Concomitant]
     Dosage: DOSE: UNK
     Dates: start: 20050101
  5. ANDROCUR [Concomitant]
     Dosage: DOSE: UNK
     Dates: start: 20050101
  6. CASODEX [Concomitant]
     Indication: DISEASE PROGRESSION
     Dosage: DOSE: UNK
     Dates: start: 20070101
  7. PREDNISONE TAB [Concomitant]
     Indication: PROSTATE CANCER
  8. ACTONEL [Concomitant]
     Indication: PROSTATE CANCER

REACTIONS (2)
  - FEBRILE NEUTROPENIA [None]
  - HYPONATRAEMIA [None]
